FAERS Safety Report 8282912-4 (Version None)
Quarter: 2012Q2

REPORT INFORMATION
  Report Type: 
  Country: None (occurrence: None)
  Receive Date: 20120413
  Receipt Date: 20120409
  Transmission Date: 20120825
  Serious: Yes (Other)
  Sender: FDA-Public Use
  Company Number: US-UCBSA-051158

PATIENT
  Age: 14 Year
  Sex: Female

DRUGS (1)
  1. CIMZIA [Suspect]
     Indication: CROHN'S DISEASE
     Route: 058
     Dates: start: 20110101, end: 20120409

REACTIONS (6)
  - PSORIASIS [None]
  - STREPTOCOCCAL INFECTION [None]
  - ESCHERICHIA INFECTION [None]
  - RASH [None]
  - STAPHYLOCOCCAL INFECTION [None]
  - GASTROINTESTINAL INFLAMMATION [None]
